FAERS Safety Report 4834805-X (Version None)
Quarter: 2005Q4

REPORT INFORMATION
  Report Type: 
  Country: None (occurrence: None)
  Receive Date: 20051122
  Receipt Date: 20051116
  Transmission Date: 20060501
  Serious: Yes (Life-Threatening, Hospitalization)
  Sender: FDA-Public Use
  Company Number: US-BRISTOL-MYERS SQUIBB COMPANY-13182969

PATIENT
  Age: 78 Year
  Sex: Female

DRUGS (15)
  1. TAXOL [Suspect]
     Dates: start: 20051031, end: 20051107
  2. ALOXI [Concomitant]
     Indication: PROPHYLAXIS OF NAUSEA AND VOMITING
     Route: 042
     Dates: start: 20051020, end: 20051107
  3. DEXAMETHASONE [Concomitant]
     Indication: PROPHYLAXIS OF NAUSEA AND VOMITING
     Route: 042
     Dates: start: 20051020, end: 20051107
  4. ZANTAC [Concomitant]
     Indication: PROPHYLAXIS OF NAUSEA AND VOMITING
     Route: 042
     Dates: start: 20051020, end: 20051107
  5. HERCEPTIN [Concomitant]
     Dates: start: 20051031
  6. HEPARIN LOCK FLUSH [Concomitant]
     Dates: start: 20051031
  7. ZOMETA [Concomitant]
  8. MULTI-VITAMIN [Concomitant]
  9. SENNA [Concomitant]
  10. PROTONIX [Concomitant]
  11. FOLIC ACID [Concomitant]
  12. COUMADIN [Concomitant]
  13. PREDNISONE [Concomitant]
  14. TYLENOL (CAPLET) [Concomitant]
  15. ARANESP [Concomitant]
     Dates: start: 20051020, end: 20051020

REACTIONS (5)
  - BLOOD PRESSURE INCREASED [None]
  - BUTTOCK PAIN [None]
  - CHILLS [None]
  - GROIN PAIN [None]
  - PAIN IN EXTREMITY [None]
